FAERS Safety Report 6223793-X (Version None)
Quarter: 2009Q2

REPORT INFORMATION
  Report Type: 
  Country: None (occurrence: None)
  Receive Date: 20090611
  Receipt Date: 20090518
  Transmission Date: 20091009
  Serious: No
  Sender: FDA-Public Use
  Company Number: US-ABBOTT-09P-163-0559178-00

PATIENT
  Sex: Female
  Weight: 69.916 kg

DRUGS (7)
  1. HUMIRA [Suspect]
     Indication: RHEUMATOID ARTHRITIS
     Dates: start: 20090129
  2. HUMIRA [Suspect]
     Dates: start: 20090427
  3. METHOTREXATE [Concomitant]
     Indication: DRUG USE FOR UNKNOWN INDICATION
     Dosage: 8 PILLS A WEEK
  4. SULFASALAZINE [Concomitant]
     Indication: DRUG USE FOR UNKNOWN INDICATION
  5. FOLIC ACID [Concomitant]
     Indication: DRUG USE FOR UNKNOWN INDICATION
  6. EVISTA [Concomitant]
     Indication: DRUG USE FOR UNKNOWN INDICATION
  7. HIGH BLOOD PRESSURE MEDICATION [Concomitant]
     Indication: HYPERTENSION

REACTIONS (5)
  - INJECTION SITE PAIN [None]
  - INJECTION SITE RASH [None]
  - RASH [None]
  - RASH PRURITIC [None]
  - TOOTH INFECTION [None]
